FAERS Safety Report 4284179-0 (Version None)
Quarter: 2004Q1

REPORT INFORMATION
  Report Type: 
  Country: None (occurrence: None)
  Receive Date: 20040130
  Receipt Date: 20040121
  Transmission Date: 20041129
  Serious: Yes (Other)
  Sender: FDA-Public Use
  Company Number: 2004195732DE

PATIENT
  Age: 30 Year
  Sex: Male

DRUGS (5)
  1. ZYVOX [Suspect]
     Indication: TUBERCULOSIS
     Dosage: 600 MG, BID
     Dates: end: 20040101
  2. CAPREOMYCIN (CAPREOMYCIN) [Concomitant]
  3. CIPROFLOXACIN [Concomitant]
  4. TERIZIDONE (TERIZIDONE) [Concomitant]
  5. VITAMIN B [Concomitant]

REACTIONS (1)
  - POLYNEUROPATHY [None]
